FAERS Safety Report 10044028 (Version 2)
Quarter: 2014Q1

REPORT INFORMATION
  Report Type: Spontaneous
  Country: US (occurrence: US)
  Receive Date: 20140328
  Receipt Date: 20140328
  Transmission Date: 20141002
  Serious: No
  Sender: FDA-Public Use
  Company Number: US-MYLANLABS-2013S1018292

PATIENT
  Age: 42 Year
  Sex: Female
  Weight: 85.28 kg

DRUGS (3)
  1. EMSAM (SELEGILINE TRANSDERMAL SYSTEM) [Suspect]
     Indication: DEPRESSION
     Dosage: QD
     Route: 062
     Dates: start: 20130731, end: 20130813
  2. SELEGILINE [Suspect]
     Indication: DEPRESSION
     Route: 048
     Dates: start: 20130814, end: 20130815
  3. KLONOPIN [Concomitant]
     Indication: INSOMNIA
     Route: 048
     Dates: start: 2012

REACTIONS (2)
  - Herpes zoster [Not Recovered/Not Resolved]
  - Rash [Not Recovered/Not Resolved]
